FAERS Safety Report 8035494-6 (Version None)
Quarter: 2012Q1

REPORT INFORMATION
  Report Type: 
  Country: None (occurrence: None)
  Receive Date: 20120110
  Receipt Date: 20120110
  Transmission Date: 20120608
  Serious: Yes (Life-Threatening)
  Sender: FDA-Public Use
  Company Number: None

PATIENT
  Age: 29 Year
  Sex: Female
  Weight: 60.9 kg

DRUGS (1)
  1. IRON SUCROSE [Suspect]
     Indication: ANAEMIA
     Dosage: 300MG MG ONCE IV
     Route: 042
     Dates: start: 20110809, end: 20110825

REACTIONS (3)
  - TACHYCARDIA [None]
  - PALPITATIONS [None]
  - ANAPHYLACTIC REACTION [None]
